FAERS Safety Report 16124807 (Version 1)
Quarter: 2019Q1

REPORT INFORMATION
  Report Type: Spontaneous
  Country: FR (occurrence: FR)
  Receive Date: 20190327
  Receipt Date: 20190327
  Transmission Date: 20190418
  Serious: Yes (Other)
  Sender: FDA-Public Use
  Company Number: FR-BAYER-2019-057489

PATIENT
  Age: 30 Year
  Sex: Female

DRUGS (1)
  1. ACETYLSALICYLIC ACID (CARDIO) [Suspect]
     Active Substance: ASPIRIN
     Indication: PROPHYLAXIS
     Dosage: 100 G FROM 10 WEEKS OF GESTATION

REACTIONS (5)
  - Off label use [None]
  - Pre-eclampsia [None]
  - Maternal exposure during pregnancy [None]
  - Gestational hypertension [None]
  - Product use in unapproved indication [None]
